FAERS Safety Report 14610848 (Version 2)
Quarter: 2018Q2

REPORT INFORMATION
  Report Type: Report from Study
  Country: None (occurrence: CA)
  Receive Date: 20180308
  Receipt Date: 20180403
  Transmission Date: 20180711
  Serious: Yes (Other)
  Sender: FDA-Public Use
  Company Number: CA-ABBVIE-18K-028-2267817-00

PATIENT
  Age: 67 Year
  Sex: Female

DRUGS (2)
  1. HUMIRA [Suspect]
     Active Substance: ADALIMUMAB
     Route: 058
     Dates: start: 2018
  2. HUMIRA [Suspect]
     Active Substance: ADALIMUMAB
     Indication: ANKYLOSING SPONDYLITIS
     Route: 058
     Dates: start: 20151222, end: 20180207

REACTIONS (8)
  - Intervertebral disc protrusion [Not Recovered/Not Resolved]
  - Coccydynia [Unknown]
  - Fall [Recovered/Resolved]
  - Balance disorder [Unknown]
  - Carpal tunnel syndrome [Not Recovered/Not Resolved]
  - Contusion [Recovered/Resolved]
  - Neuropathy peripheral [Recovering/Resolving]
  - Back pain [Not Recovered/Not Resolved]

NARRATIVE: CASE EVENT DATE: 201802
